FAERS Safety Report 5334568-8 (Version None)
Quarter: 2007Q2

REPORT INFORMATION
  Report Type: 
  Country: None (occurrence: None)
  Receive Date: 20070308
  Receipt Date: 20061114
  Transmission Date: 20071010
  Serious: No
  Sender: FDA-Public Use
  Company Number: 2006-BP-08385BP

PATIENT
  Age: 60 Year
  Sex: Female

DRUGS (10)
  1. SPIRIVA [Suspect]
     Indication: ASTHMA
     Dosage: 18 MCG (18 MCG, 1 IN 1 D), IH
     Route: 055
     Dates: start: 20060601
  2. SPIRIVA [Suspect]
     Indication: CHRONIC OBSTRUCTIVE PULMONARY DISEASE
     Dosage: 18 MCG (18 MCG, 1 IN 1 D), IH
     Route: 055
     Dates: start: 20060601
  3. SPIRIVA [Suspect]
  4. ALBUTEROL SULFATE [Concomitant]
  5. FOSAMAX [Concomitant]
  6. NEXIUM [Concomitant]
  7. ADVAIR (SERETIDE [Concomitant]
  8. ALLEGRA D (ALLEGRA-D) [Concomitant]
  9. RANITIDINE [Concomitant]
  10. ..................... [Concomitant]

REACTIONS (2)
  - DRUG INEFFECTIVE [None]
  - DYSPNOEA [None]
